FAERS Safety Report 8136246-9 (Version None)
Quarter: 2012Q1

REPORT INFORMATION
  Report Type: 
  Country: None (occurrence: None)
  Receive Date: 20120214
  Receipt Date: 20120202
  Transmission Date: 20120608
  Serious: Yes (Hospitalization, Other)
  Sender: FDA-Public Use
  Company Number: IT-ELI_LILLY_AND_COMPANY-US_020282028

PATIENT
  Age: 51 Year
  Sex: Male

DRUGS (12)
  1. GRANISETRON [Concomitant]
     Dosage: 3 MG, DAY 3 AND 4 EVERY 3 WEEKS
     Route: 048
  2. CISPLATIN [Concomitant]
     Dosage: 60 MG/M2, UNK
     Route: 042
  3. GEMCITABINE HYDROCHLORIDE [Suspect]
     Indication: NON-SMALL CELL LUNG CANCER STAGE IIIA
     Dosage: 1250 MG/M2, DAY 1 + 8 EVERY 3 WEEKS
     Route: 042
  4. GEMCITABINE HYDROCHLORIDE [Suspect]
     Dosage: 937.5 MG/M2, UNK
     Route: 042
  5. DESAMETASONE FOSF [Concomitant]
     Indication: PROPHYLAXIS OF NAUSEA AND VOMITING
     Dosage: 8 MG, DAY 1 AND 2 EVERY 3 WEEKS
     Route: 042
  6. GRANISETRON [Concomitant]
     Indication: PROPHYLAXIS OF NAUSEA AND VOMITING
     Dosage: 3 MG, DAY 1 AND 2 EVERY 3 WEEKS
     Route: 042
  7. DEXAMETHASONE [Concomitant]
     Dosage: 4 MG, DAY 3 AND 4 EVERY 21 DAYS
     Route: 048
  8. SALINE [Concomitant]
     Dosage: 3000 CC, QD
     Route: 042
  9. DEXAMETHASONE [Concomitant]
     Indication: PROPHYLAXIS OF NAUSEA AND VOMITING
     Dosage: 4 MG, DAY 1 AND 2 EVERY 3 WEEKS
     Route: 042
  10. ELECTROLYTE SOLUTIONS [Concomitant]
  11. CISPLATIN [Concomitant]
     Indication: NON-SMALL CELL LUNG CANCER STAGE IIIA
     Dosage: 80 MG/M2, DAY 1 EVERY 3 WEEKS
     Route: 042
  12. DESAMETASONE FOSF [Concomitant]
     Dosage: 8 MG, DAY 3 AND 4 EVERY 3 WEEKS
     Route: 048

REACTIONS (3)
  - CAPILLARY LEAK SYNDROME [None]
  - PANCYTOPENIA [None]
  - RENAL IMPAIRMENT [None]
